FAERS Safety Report 23287307 (Version 1)
Quarter: 2023Q4

REPORT INFORMATION
  Report Type: Spontaneous
  Country: US (occurrence: None)
  Receive Date: 20231210
  Receipt Date: 20231210
  Transmission Date: 20240109
  Serious: Yes (Other)
  Sender: FDA-Public Use
  Company Number: None

PATIENT
  Age: 69 Year
  Sex: Female
  Weight: 135 kg

DRUGS (17)
  1. MULTAQ [Suspect]
     Active Substance: DRONEDARONE
     Indication: Atrial fibrillation
     Dosage: OTHER QUANTITY : 1 TABLET(S);?FREQUENCY : TWICE A DAY;?
     Route: 048
     Dates: start: 20231109, end: 20231210
  2. Levothyrozoxine [Concomitant]
  3. LISINOPRIL [Concomitant]
  4. ELIQUIS [Concomitant]
     Active Substance: APIXABAN
  5. METOPROLOL [Concomitant]
     Active Substance: METOPROLOL
  6. SIMVASTATIN [Concomitant]
  7. MULTAQ [Concomitant]
     Active Substance: DRONEDARONE
  8. FISH OIL [Concomitant]
  9. VITAMIN D [Concomitant]
     Active Substance: VITAMIN D NOS
  10. GARLIC [Concomitant]
     Active Substance: GARLIC
  11. BIOTIN [Concomitant]
  12. VITAMIN E [Concomitant]
     Active Substance: .ALPHA.-TOCOPHEROL
  13. VITAMINS [Concomitant]
     Active Substance: VITAMINS
  14. glucosamine chrondroitin [Concomitant]
  15. CALCIUM [Concomitant]
     Active Substance: CALCIUM
  16. MAGNESIUM [Concomitant]
  17. VITAMIN D3 [Concomitant]
     Active Substance: CHOLECALCIFEROL

REACTIONS (7)
  - Diarrhoea [None]
  - Nausea [None]
  - Dyspepsia [None]
  - Fatigue [None]
  - Somnolence [None]
  - Rash [None]
  - Skin disorder [None]

NARRATIVE: CASE EVENT DATE: 20231210
